FAERS Safety Report 7901071-8 (Version None)
Quarter: 2011Q4

REPORT INFORMATION
  Report Type: 
  Country: None (occurrence: None)
  Receive Date: 20111108
  Receipt Date: 20111102
  Transmission Date: 20120403
  Serious: Yes (Death)
  Sender: FDA-Public Use
  Company Number: JP-ELI_LILLY_AND_COMPANY-JP201110008305

PATIENT
  Age: 78 Year
  Sex: Male

DRUGS (1)
  1. GEMZAR [Suspect]
     Indication: PANCREATIC CARCINOMA NON-RESECTABLE
     Dosage: 1400 MG, UNK
     Route: 042
     Dates: start: 20110707, end: 20111027

REACTIONS (1)
  - ACUTE MYOCARDIAL INFARCTION [None]
